FAERS Safety Report 5499199-8 (Version None)
Quarter: 2007Q4

REPORT INFORMATION
  Report Type: 
  Country: None (occurrence: None)
  Receive Date: 20071026
  Receipt Date: 20071017
  Transmission Date: 20080405
  Serious: Yes (Death)
  Sender: FDA-Public Use
  Company Number: AU-AVENTIS-200714347EU

PATIENT
  Age: 79 Year
  Sex: Male

DRUGS (7)
  1. RILUTEK [Suspect]
     Indication: MOTOR NEURONE DISEASE
     Route: 048
     Dates: start: 20060921
  2. ESOMEPRAZOLE [Concomitant]
     Dosage: DOSE: UNK
  3. RISEDRONATE SODIUM [Concomitant]
     Dosage: DOSE: UNK
  4. IRBESARTAN [Concomitant]
     Dosage: DOSE: UNK
  5. ATORVASTATIN [Concomitant]
     Dosage: DOSE: UNK
  6. METOPROLOL [Concomitant]
     Dosage: DOSE: UNK
  7. ALLOPURINOL [Concomitant]
     Dosage: DOSE: UNK

REACTIONS (1)
  - MYOCARDIAL INFARCTION [None]
